FAERS Safety Report 14019706 (Version 3)
Quarter: 2018Q1

REPORT INFORMATION
  Report Type: Spontaneous
  Country: IT (occurrence: IT)
  Receive Date: 20170928
  Receipt Date: 20180123
  Transmission Date: 20180508
  Serious: Yes (Hospitalization)
  Sender: FDA-Public Use
  Company Number: IT-PFIZER INC-2017416518

PATIENT
  Age: 50 Year
  Sex: Male

DRUGS (8)
  1. GABAPENTIN. [Suspect]
     Active Substance: GABAPENTIN
     Dosage: 1 DF, TOTAL
     Route: 048
     Dates: start: 20170427, end: 20170427
  2. NOZINAN /00038601/ [Interacting]
     Active Substance: LEVOMEPROMAZINE
     Indication: INTENTIONAL SELF-INJURY
     Dosage: 1 DF, TOTAL
     Route: 048
     Dates: start: 20170427, end: 20170427
  3. STILNOX [Interacting]
     Active Substance: ZOLPIDEM TARTRATE
     Indication: INTENTIONAL SELF-INJURY
     Dosage: 1 DF, TOTAL
     Route: 048
     Dates: start: 20170427, end: 20170427
  4. GABAPENTIN. [Interacting]
     Active Substance: GABAPENTIN
     Dosage: 300 MG, UNK
  5. DIAZEPAM. [Interacting]
     Active Substance: DIAZEPAM
     Indication: INTENTIONAL SELF-INJURY
     Dosage: 1 DF, TOTAL
     Route: 048
     Dates: start: 20170427, end: 20170427
  6. STILNOX [Interacting]
     Active Substance: ZOLPIDEM TARTRATE
     Dosage: 10 MG, UNK
  7. NOZINAN /00038601/ [Interacting]
     Active Substance: LEVOMEPROMAZINE
     Dosage: 100 MG, UNK
  8. TALOFEN [Interacting]
     Active Substance: PROMAZINE HYDROCHLORIDE
     Indication: INTENTIONAL SELF-INJURY
     Dosage: 1 GTT, TOTAL
     Route: 048
     Dates: start: 20170427, end: 20170427

REACTIONS (6)
  - Bradypnoea [Unknown]
  - Hypoxia [Unknown]
  - Drug abuse [Unknown]
  - Alcohol interaction [Unknown]
  - Coma [Unknown]
  - Electrocardiogram QT prolonged [Unknown]

NARRATIVE: CASE EVENT DATE: 20170427
